FAERS Safety Report 5032352-6 (Version None)
Quarter: 2006Q2

REPORT INFORMATION
  Report Type: 
  Country: None (occurrence: None)
  Receive Date: 20060508
  Receipt Date: 20050601
  Transmission Date: 20061013
  Serious: Yes (Hospitalization)
  Sender: FDA-Public Use
  Company Number: 232271K05USA

PATIENT
  Age: 28 Year
  Sex: Female

DRUGS (2)
  1. REBIF [Suspect]
     Indication: MULTIPLE SCLEROSIS
     Dosage: 44 MCG, 3 IN 1 WEEKS, SUBCUTANEOUS
     Route: 058
     Dates: start: 20020601
  2. IMMUNIZATIONS (VACCINES) [Suspect]
     Dates: start: 20050101

REACTIONS (8)
  - DIFFICULTY IN WALKING [None]
  - HYPOKINESIA [None]
  - INJECTION SITE ERYTHEMA [None]
  - MULTIPLE SCLEROSIS RELAPSE [None]
  - PSORIASIS [None]
  - RASH [None]
  - SKIN EXFOLIATION [None]
  - SPINAL CORD INJURY [None]
